FAERS Safety Report 8790558 (Version 1)
Quarter: 2012Q4

REPORT INFORMATION
  Report Type: Spontaneous
  Country: GB (occurrence: None)
  Receive Date: 20120910
  Receipt Date: 20120910
  Transmission Date: 20130627
  Serious: Yes (Hospitalization)
  Sender: FDA-Public Use
  Company Number: 2012P1055850

PATIENT
  Age: 21 Year
  Sex: Male

DRUGS (4)
  1. AMOXICILLIN [Suspect]
     Route: 042
  2. METRONIDAZOLE [Suspect]
     Route: 042
  3. DEXAMETHASONE [Concomitant]
  4. HARTMANN^S SOLUTION [Concomitant]

REACTIONS (8)
  - Jarisch-Herxheimer reaction [None]
  - Chills [None]
  - Communication disorder [None]
  - Agitation [None]
  - Delusion [None]
  - Hyperhidrosis [None]
  - Respiratory alkalosis [None]
  - Hallucinations, mixed [None]
